FAERS Safety Report 8785627 (Version 1)
Quarter: 2012Q4

REPORT INFORMATION
  Report Type: Report from Study
  Country: JP (occurrence: JP)
  Receive Date: 20120914
  Receipt Date: 20120914
  Transmission Date: 20130627
  Serious: Yes (Life-Threatening)
  Sender: FDA-Public Use
  Company Number: JP-CELGENEUS-087-50794-12091393

PATIENT
  Age: 67 Year
  Sex: Male
  Weight: 56 kg

DRUGS (7)
  1. VIDAZA [Suspect]
     Indication: MDS
     Dosage: 100 Milligram
     Route: 058
     Dates: start: 20120725, end: 20120731
  2. CIPROXAN [Concomitant]
     Indication: DRUG USE FOR UNKNOWN INDICATION
     Route: 065
     Dates: start: 20120725, end: 20120731
  3. ITRIZOLE [Concomitant]
     Indication: DRUG USE FOR UNKNOWN INDICATION
     Route: 065
     Dates: start: 20120725, end: 20120731
  4. WARFARIN [Concomitant]
     Indication: DRUG USE FOR UNKNOWN INDICATION
     Route: 065
  5. LASIX [Concomitant]
     Indication: DRUG USE FOR UNKNOWN INDICATION
     Route: 065
  6. MUCODYNE [Concomitant]
     Indication: DRUG USE FOR UNKNOWN INDICATION
     Route: 065
  7. HARNAL [Concomitant]
     Indication: DRUG USE FOR UNKNOWN INDICATION
     Route: 065

REACTIONS (2)
  - Febrile neutropenia [Unknown]
  - Pneumonia [Unknown]
